FAERS Safety Report 8799408 (Version 1)
Quarter: 2012Q4

REPORT INFORMATION
  Report Type: 
  Country: US (occurrence: US)
  Receive Date: 20120919
  Receipt Date: 20120919
  Transmission Date: 20130627
  Serious: Yes (Hospitalization, Disabling, Other)
  Sender: FDA-Public Use
  Company Number: US-009507513-1201USA00793

PATIENT

DRUGS (6)
  1. FOSAMAX [Suspect]
     Route: 048
     Dates: start: 1996
  2. FOSAMAX [Suspect]
     Dosage: 70 mg, QW
     Route: 048
     Dates: start: 2001, end: 201007
  3. ALBUTEROL [Concomitant]
     Indication: ASTHMA
     Dates: start: 1996, end: 2010
  4. SEREVENT [Concomitant]
     Indication: ASTHMA
     Dates: start: 1996, end: 2010
  5. FOSAMAX [Suspect]
     Dosage: 70 mg, UNK
     Route: 048
     Dates: start: 20080222
  6. ALENDRONATE SODIUM [Suspect]
     Dosage: 70 mg, UNK
     Dates: start: 20080903

REACTIONS (103)
  - Femur fracture [Recovering/Resolving]
  - Hyponatraemia [Unknown]
  - Renal failure chronic [Unknown]
  - Renal failure acute [Unknown]
  - Haematochezia [Unknown]
  - Humerus fracture [Recovered/Resolved]
  - Pneumonia klebsiella [Unknown]
  - Pelvic fracture [Unknown]
  - Rotator cuff syndrome [Unknown]
  - Craniocerebral injury [Unknown]
  - Urinary tract infection [Unknown]
  - Laceration [Unknown]
  - Adverse event [Unknown]
  - Clavicle fracture [Unknown]
  - Intervertebral disc degeneration [Unknown]
  - Scoliosis [Unknown]
  - Toxic encephalopathy [Unknown]
  - Haemorrhagic anaemia [Unknown]
  - Fall [Unknown]
  - Fall [Unknown]
  - Dizziness [Unknown]
  - Rash [Unknown]
  - Arthralgia [Unknown]
  - Dementia [Not Recovered/Not Resolved]
  - Osteoarthritis [Not Recovered/Not Resolved]
  - Oropharyngeal pain [Unknown]
  - Urinary tract infection [Unknown]
  - Laryngitis [Unknown]
  - Fall [Unknown]
  - Fibromyalgia [Unknown]
  - Laceration [Unknown]
  - Sciatica [Unknown]
  - Pneumonia [Unknown]
  - Meniscus injury [Unknown]
  - Myelodysplastic syndrome [Unknown]
  - Clavicle fracture [Unknown]
  - Tongue injury [Unknown]
  - Dyspnoea [Unknown]
  - Fall [Unknown]
  - Fatigue [Not Recovered/Not Resolved]
  - Depression [Unknown]
  - Fall [Not Recovered/Not Resolved]
  - Gingival recession [Unknown]
  - Otitis media [Recovered/Resolved]
  - Orthostatic hypotension [Unknown]
  - Upper respiratory tract infection [Unknown]
  - Sinusitis [Unknown]
  - Road traffic accident [Unknown]
  - Inappropriate schedule of drug administration [Unknown]
  - Confusional state [Unknown]
  - Barrett^s oesophagus [Unknown]
  - Acute sinusitis [Unknown]
  - Weight decreased [Unknown]
  - Large intestine polyp [Unknown]
  - Renal atrophy [Unknown]
  - Eczema [Unknown]
  - Early satiety [Unknown]
  - Lung disorder [Unknown]
  - Meralgia paraesthetica [Unknown]
  - Spondylolisthesis [Not Recovered/Not Resolved]
  - Atelectasis [Recovering/Resolving]
  - Chest discomfort [Unknown]
  - Dilatation ventricular [Unknown]
  - Aortic calcification [Unknown]
  - Diverticulum [Not Recovered/Not Resolved]
  - Urinary incontinence [Not Recovered/Not Resolved]
  - Pharyngitis [Unknown]
  - Cerebrovascular disorder [Unknown]
  - Bursitis [Unknown]
  - Bone contusion [Unknown]
  - Breast haematoma [Unknown]
  - Gait disturbance [Unknown]
  - Cataract [Unknown]
  - Paranoia [Unknown]
  - Fall [Unknown]
  - Anxiety [Unknown]
  - Irritability [Unknown]
  - Onychogryphosis [Unknown]
  - Ingrowing nail [Unknown]
  - Xerosis [Unknown]
  - Onychomycosis [Unknown]
  - Atelectasis [Unknown]
  - Renal cyst [Unknown]
  - Gastrointestinal oedema [Unknown]
  - Tooth disorder [Unknown]
  - Malaise [Unknown]
  - Tooth disorder [Unknown]
  - Tooth disorder [Unknown]
  - Weight increased [Unknown]
  - Gastrointestinal tract adenoma [Unknown]
  - Tooth disorder [Unknown]
  - Periodontal disease [Unknown]
  - Muscular weakness [Unknown]
  - Drug hypersensitivity [Unknown]
  - Oedema peripheral [Not Recovered/Not Resolved]
  - Pain in extremity [Unknown]
  - Vertigo [Unknown]
  - Pain in extremity [Unknown]
  - Abdominal discomfort [Recovering/Resolving]
  - Dysphagia [Unknown]
  - Pain in extremity [Recovering/Resolving]
  - Musculoskeletal pain [Recovering/Resolving]
  - Headache [Unknown]
